FAERS Safety Report 19987777 (Version 1)
Quarter: 2021Q4

REPORT INFORMATION
  Report Type: Spontaneous
  Country: US (occurrence: US)
  Receive Date: 20211022
  Receipt Date: 20211022
  Transmission Date: 20220303
  Serious: No
  Sender: FDA-Public Use
  Company Number: US-FRESENIUS MEDICAL CARE RENAL THERAPIES GROUP-FMC-2108-001352

PATIENT
  Age: 76 Year
  Sex: Male

DRUGS (2)
  1. PHOSLO [Suspect]
     Active Substance: CALCIUM ACETATE
     Indication: Hyperphosphataemia
     Route: 048
  2. ENTRESTO [Suspect]
     Active Substance: SACUBITRIL\VALSARTAN
     Indication: Cardiac failure
     Dosage: 49/51 MG TWICE DAILY
     Route: 048

REACTIONS (4)
  - Loss of consciousness [Recovering/Resolving]
  - Amnesia [Recovering/Resolving]
  - Fall [Recovering/Resolving]
  - Muscular weakness [Unknown]
